FAERS Safety Report 4635127-2 (Version None)
Quarter: 2005Q2

REPORT INFORMATION
  Report Type: 
  Country: None (occurrence: None)
  Receive Date: 20050414
  Receipt Date: 20050401
  Transmission Date: 20051028
  Serious: Yes (Other)
  Sender: FDA-Public Use
  Company Number: US-GLAXOSMITHKLINE-A0552496A

PATIENT
  Age: 74 Year
  Sex: Male

DRUGS (5)
  1. CITRUCEL CAPLETS [Suspect]
     Indication: GASTROINTESTINAL DISORDER
     Route: 048
     Dates: end: 20050406
  2. PROPRANOLOL [Concomitant]
  3. NEURONTIN [Concomitant]
  4. LIPITOR [Concomitant]
  5. MULTI-VITAMIN [Concomitant]

REACTIONS (6)
  - ABNORMAL FAECES [None]
  - DIARRHOEA [None]
  - DRUG INEFFECTIVE [None]
  - FAECAL INCONTINENCE [None]
  - FAECAL VOLUME INCREASED [None]
  - FREQUENT BOWEL MOVEMENTS [None]
